FAERS Safety Report 23693334 (Version 3)
Quarter: 2024Q2

REPORT INFORMATION
  Report Type: Spontaneous
  Country: US (occurrence: US)
  Receive Date: 20240401
  Receipt Date: 20240523
  Transmission Date: 20240716
  Serious: No
  Sender: FDA-Public Use
  Company Number: US-PFIZER INC-PV202400023474

PATIENT
  Age: 73 Year
  Sex: Male

DRUGS (2)
  1. BRAFTOVI [Suspect]
     Active Substance: ENCORAFENIB
     Indication: Adenocarcinoma of colon
     Dosage: TAKE 4 CAPSULES OF 75 MG (OR 300 MG) BY MOUTH DAILY
     Route: 048
  2. BRAFTOVI [Suspect]
     Active Substance: ENCORAFENIB
     Dosage: TAKE 3 CAPSULES (225 MG TOTAL) BY MOUTH DAILY. WITH OR WITHOUT FOOD.
     Route: 048

REACTIONS (1)
  - Fatigue [Unknown]
